FAERS Safety Report 7209311-8 (Version None)
Quarter: 2011Q1

REPORT INFORMATION
  Report Type: 
  Country: None (occurrence: None)
  Receive Date: 20110104
  Receipt Date: 20101221
  Transmission Date: 20110831
  Serious: Yes (Hospitalization, Other)
  Sender: FDA-Public Use
  Company Number: US-ELI_LILLY_AND_COMPANY-US201011001991

PATIENT
  Sex: Male

DRUGS (6)
  1. ZYPREXA [Suspect]
     Indication: BIPOLAR I DISORDER
     Dosage: 5 MG, DAILY (1/D)
  2. ZYPREXA [Suspect]
     Dosage: 5 MG, DAILY (1/D)
  3. ZYPREXA [Suspect]
     Dosage: 10 MG, DAILY (1/D)
  4. ZYPREXA [Suspect]
     Dosage: 7.5 MG, DAILY (1/D)
  5. ZYPREXA [Suspect]
     Dosage: 2.5 MG, DAILY (1/D)
  6. ZYPREXA [Suspect]
     Dosage: 5 MG, DAILY (1/D)

REACTIONS (19)
  - ADVERSE EVENT [None]
  - FEELING ABNORMAL [None]
  - LOSS OF CONSCIOUSNESS [None]
  - SKIN DISCOLOURATION [None]
  - GAIT DISTURBANCE [None]
  - INJURY [None]
  - INSOMNIA [None]
  - ANXIETY [None]
  - DISTURBANCE IN ATTENTION [None]
  - ROAD TRAFFIC ACCIDENT [None]
  - NIGHT BLINDNESS [None]
  - AGITATION [None]
  - EATING DISORDER [None]
  - MALAISE [None]
  - NERVOUSNESS [None]
  - DRUG INEFFECTIVE [None]
  - FALL [None]
  - BALANCE DISORDER [None]
  - LACERATION [None]
